FAERS Safety Report 4486958-3 (Version None)
Quarter: 2004Q4

REPORT INFORMATION
  Report Type: 
  Country: None (occurrence: None)
  Receive Date: 20041027
  Receipt Date: 20040823
  Transmission Date: 20050328
  Serious: Yes (Hospitalization)
  Sender: FDA-Public Use
  Company Number: DE-ROCHE-378260

PATIENT
  Age: 51 Year
  Sex: Male
  Weight: 69 kg

DRUGS (45)
  1. DACLIZUMAB [Suspect]
     Route: 042
     Dates: start: 20040819, end: 20040819
  2. DACLIZUMAB [Suspect]
     Route: 042
     Dates: start: 20040902, end: 20040902
  3. DACLIZUMAB [Suspect]
     Route: 042
     Dates: start: 20040914, end: 20040914
  4. DACLIZUMAB [Suspect]
     Route: 042
     Dates: start: 20040927, end: 20040927
  5. DACLIZUMAB [Suspect]
     Route: 042
     Dates: start: 20041012, end: 20041012
  6. MYCOPHENOLATE MOFETIL [Suspect]
     Route: 048
     Dates: start: 20040819
  7. MYCOPHENOLATE MOFETIL [Suspect]
     Dosage: 1000 MG + 500 MG.
     Route: 048
     Dates: start: 20040827, end: 20040827
  8. MYCOPHENOLATE MOFETIL [Suspect]
     Dosage: 500 MG + 2 X 750 MG
     Route: 048
     Dates: start: 20040828, end: 20040828
  9. MYCOPHENOLATE MOFETIL [Suspect]
     Route: 048
     Dates: start: 20040829
  10. MYCOPHENOLATE MOFETIL [Suspect]
     Route: 048
     Dates: start: 20040901, end: 20040901
  11. MYCOPHENOLATE MOFETIL [Suspect]
     Route: 048
     Dates: start: 20040902
  12. MYCOPHENOLATE MOFETIL [Suspect]
     Route: 048
     Dates: start: 20040909
  13. MYCOPHENOLATE MOFETIL [Suspect]
     Route: 048
     Dates: start: 20041005
  14. MYCOPHENOLATE MOFETIL [Suspect]
     Route: 048
     Dates: start: 20041013, end: 20041017
  15. SIROLIMUS [Suspect]
     Route: 048
     Dates: start: 20040819, end: 20040821
  16. SIROLIMUS [Suspect]
     Route: 048
     Dates: start: 20040822
  17. SIROLIMUS [Suspect]
     Route: 048
     Dates: start: 20040828
  18. SIROLIMUS [Suspect]
     Route: 048
     Dates: start: 20040904
  19. SIROLIMUS [Suspect]
     Route: 048
     Dates: start: 20040909
  20. SIROLIMUS [Suspect]
     Route: 048
     Dates: start: 20040927, end: 20040927
  21. SIROLIMUS [Suspect]
     Route: 048
     Dates: start: 20040928
  22. SIROLIMUS [Suspect]
     Route: 048
     Dates: start: 20041005, end: 20041013
  23. SIROLIMUS [Suspect]
     Route: 048
     Dates: start: 20041016, end: 20041017
  24. PREDNISOLONE [Suspect]
     Route: 042
     Dates: start: 20040822
  25. PREDNISOLONE [Suspect]
     Route: 042
     Dates: start: 20040819, end: 20040819
  26. PREDNISOLONE [Suspect]
     Route: 042
     Dates: start: 20040820
  27. PREDNISOLONE [Suspect]
     Route: 042
     Dates: start: 20040821
  28. PREDNISOLONE [Suspect]
     Route: 042
     Dates: start: 20040823
  29. PREDNISOLONE [Suspect]
     Route: 042
     Dates: start: 20040824
  30. PREDNISOLONE [Suspect]
     Route: 042
     Dates: start: 20040826
  31. PREDNISOLONE [Suspect]
     Route: 042
     Dates: start: 20040914
  32. PREDNISOLONE [Suspect]
     Route: 042
     Dates: start: 20040920
  33. PREDNISOLONE [Suspect]
     Route: 042
     Dates: start: 20040927
  34. PREDNISOLONE [Suspect]
     Route: 042
     Dates: start: 20041005, end: 20041008
  35. PREDNISOLONE [Suspect]
     Route: 042
     Dates: start: 20041008, end: 20041011
  36. PREDNISOLONE [Suspect]
     Route: 042
     Dates: start: 20041011
  37. ACETYLCYSTEINE [Concomitant]
     Dates: start: 20040819
  38. AMPHOTERICIN B [Concomitant]
     Dates: start: 20040819
  39. CEFUROXIM [Concomitant]
     Dates: start: 20040819
  40. DILTIAZEM [Concomitant]
     Dates: start: 20040819, end: 20040828
  41. FUROSEMIDE [Concomitant]
     Dates: start: 20040822
  42. METOPROLOL [Concomitant]
     Dates: start: 20040822
  43. URAPIDIL [Concomitant]
     Dates: start: 20040821, end: 20040903
  44. VALGANCICLOVIR [Concomitant]
     Dosage: STOPPED ON 04 SEP 2004 AND RESTARTED ON 05 SEP 2004.
     Dates: start: 20040820, end: 20041013
  45. ATORVASTATIN CALCIUM [Concomitant]
     Dates: start: 20041011

REACTIONS (5)
  - ANAEMIA [None]
  - ARTERIAL HAEMORRHAGE [None]
  - HAEMATOMA INFECTION [None]
  - PANCYTOPENIA [None]
  - POST PROCEDURAL HAEMORRHAGE [None]
